FAERS Safety Report 9477960 (Version 1)
Quarter: 2013Q3

REPORT INFORMATION
  Report Type: Spontaneous
  Country: US (occurrence: US)
  Receive Date: 20130827
  Receipt Date: 20130827
  Transmission Date: 20140515
  Serious: Yes (Hospitalization)
  Sender: FDA-Public Use
  Company Number: US-AMGEN-USASP2013058188

PATIENT
  Sex: Female

DRUGS (1)
  1. ENBREL [Suspect]
     Indication: PRODUCT USED FOR UNKNOWN INDICATION
     Dosage: UNK
     Route: 065

REACTIONS (6)
  - Central nervous system lesion [Unknown]
  - CSF protein abnormal [Unknown]
  - Monoplegia [Unknown]
  - Hypoaesthesia [Unknown]
  - Dysarthria [Unknown]
  - Neck pain [Unknown]
